FAERS Safety Report 16472507 (Version 1)
Quarter: 2019Q2

REPORT INFORMATION
  Report Type: Spontaneous
  Country: US (occurrence: US)
  Receive Date: 20190625
  Receipt Date: 20190625
  Transmission Date: 20190711
  Serious: No
  Sender: FDA-Public Use
  Company Number: US-009507513-1906USA009169

PATIENT
  Age: 19 Year
  Sex: Female
  Weight: 108 kg

DRUGS (1)
  1. NUVARING [Suspect]
     Active Substance: ETHINYL ESTRADIOL\ETONOGESTREL
     Indication: MENSTRUAL CYCLE MANAGEMENT
     Dosage: STRENGTH 0.015/0.012 UNITS NOT REPORTED, QM
     Route: 067
     Dates: start: 201709, end: 20190604

REACTIONS (4)
  - Product quality issue [Unknown]
  - Product use in unapproved indication [Unknown]
  - Metrorrhagia [Recovered/Resolved]
  - Metrorrhagia [Not Recovered/Not Resolved]

NARRATIVE: CASE EVENT DATE: 201804
